FAERS Safety Report 22270245 (Version 2)
Quarter: 2023Q2

REPORT INFORMATION
  Report Type: Other
  Country: MX (occurrence: None)
  Receive Date: 20230501
  Receipt Date: 20230523
  Transmission Date: 20230722
  Serious: Yes (Other)
  Sender: FDA-Public Use
  Company Number: MX-ROCHE-3340242

PATIENT
  Age: 41 Year
  Sex: Female
  Weight: 60 kg

DRUGS (7)
  1. ENSPRYNG [Suspect]
     Active Substance: SATRALIZUMAB-MWGE
     Indication: Neuromyelitis optica spectrum disorder
     Route: 058
     Dates: start: 20221212
  2. KEPPRA [Concomitant]
     Active Substance: LEVETIRACETAM
  3. LYRICA [Concomitant]
     Active Substance: PREGABALIN
  4. LIPITOR [Concomitant]
     Active Substance: ATORVASTATIN CALCIUM
  5. LEVOTHYROXINE [Concomitant]
     Active Substance: LEVOTHYROXINE
  6. BIOTIN [Concomitant]
     Active Substance: BIOTIN
  7. COLLAGEN [Concomitant]
     Active Substance: COLLAGEN

REACTIONS (21)
  - Lipids increased [Unknown]
  - Liver injury [Unknown]
  - Weight increased [Unknown]
  - Stress [Unknown]
  - Swelling face [Unknown]
  - Anxiety [Unknown]
  - Blood cholesterol increased [Unknown]
  - Transaminases increased [Unknown]
  - Joint swelling [Unknown]
  - Paraesthesia [Unknown]
  - Muscle spasms [Unknown]
  - Arthralgia [Unknown]
  - Faeces discoloured [Unknown]
  - Fear [Unknown]
  - Thyroid disorder [Unknown]
  - Dyspepsia [Unknown]
  - Discomfort [Unknown]
  - Alopecia [Unknown]
  - Bone marrow disorder [Unknown]
  - Fat intolerance [Unknown]
  - Decreased appetite [Unknown]

NARRATIVE: CASE EVENT DATE: 20230301
